FAERS Safety Report 5895964-3 (Version None)
Quarter: 2008Q3

REPORT INFORMATION
  Report Type: 
  Country: None (occurrence: None)
  Receive Date: 20080924
  Receipt Date: 20080918
  Transmission Date: 20090109
  Serious: No
  Sender: FDA-Public Use
  Company Number: US-B.I. PHARMACEUTICALS,INC./RIDGEFIELD-2008-BP-13419VE

PATIENT

DRUGS (1)
  1. DIPYRIDAMOLE [Suspect]
     Indication: DIAGNOSTIC PROCEDURE

REACTIONS (3)
  - CHEST PAIN [None]
  - HYPOTENSION [None]
  - STOMACH DISCOMFORT [None]
